FAERS Safety Report 8106957-X (Version None)
Quarter: 2011Q4

REPORT INFORMATION
  Report Type: 
  Country: None (occurrence: None)
  Receive Date: 20111223
  Receipt Date: 20110719
  Transmission Date: 20120403
  Serious: Yes (Other)
  Sender: FDA-Public Use
  Company Number: PHHY2011US65905

PATIENT
  Age: 21 Year
  Sex: Male
  Weight: 72.6 kg

DRUGS (3)
  1. METHYLPHENIDATE HCL [Suspect]
     Indication: ATTENTION DEFICIT/HYPERACTIVITY DISORDER
     Dosage: 10 MG, BID
     Dates: start: 20110710, end: 20110711
  2. METHYLPHENIDATE HCL [Suspect]
     Indication: DEPRESSION
     Dosage: 10 MG, BID
     Dates: start: 20110710, end: 20110711
  3. PAXIL [Suspect]
     Indication: DEPRESSION
     Dates: end: 20110711

REACTIONS (4)
  - BLOOD PRESSURE SYSTOLIC [None]
  - TACHYPHRENIA [None]
  - AGGRESSION [None]
  - HEART RATE INCREASED [None]
